FAERS Safety Report 16566685 (Version 2)
Quarter: 2019Q3

REPORT INFORMATION
  Report Type: Spontaneous
  Country: ES (occurrence: ES)
  Receive Date: 20190712
  Receipt Date: 20190716
  Transmission Date: 20191004
  Serious: Yes (Other)
  Sender: FDA-Public Use
  Company Number: ES-JNJFOC-20190310264

PATIENT
  Age: 34 Year
  Sex: Female

DRUGS (14)
  1. DIPYRONE [Suspect]
     Active Substance: DIPYRONE
     Route: 065
  2. DICLOFENAC [Suspect]
     Active Substance: DICLOFENAC
     Route: 065
  3. DIPYRONE [Suspect]
     Active Substance: DIPYRONE
     Route: 056
  4. DIPYRONE [Suspect]
     Active Substance: DIPYRONE
     Route: 065
  5. IBUPROFEN. [Suspect]
     Active Substance: IBUPROFEN
     Indication: DRUG PROVOCATION TEST
     Dosage: 5,50,100,200 AND 250 MG ON 2ND DAY
     Route: 065
  6. IBUPROFEN. [Suspect]
     Active Substance: IBUPROFEN
     Dosage: 5,50,100,200 AND 250 MG ON 2ND DAY
     Route: 065
  7. IBUPROFEN. [Suspect]
     Active Substance: IBUPROFEN
     Dosage: 5,50,100,200 AND 250 MG ON 2ND DAY
     Route: 065
  8. DICLOFENAC [Suspect]
     Active Substance: DICLOFENAC
     Indication: PRODUCT USED FOR UNKNOWN INDICATION
     Route: 065
  9. IBUPROFEN. [Suspect]
     Active Substance: IBUPROFEN
     Dosage: 5,50,100,200 AND 250 MG ON 2ND DAY
     Route: 065
  10. DICLOFENAC [Suspect]
     Active Substance: DICLOFENAC
     Indication: DRUG PROVOCATION TEST
     Route: 065
  11. DIPYRONE [Suspect]
     Active Substance: DIPYRONE
     Indication: DRUG PROVOCATION TEST
     Dosage: 50, 150, AND 375 MG ON THE 3RD DAY
     Route: 065
  12. DIPYRONE [Suspect]
     Active Substance: DIPYRONE
     Route: 065
  13. IBUPROFEN. [Suspect]
     Active Substance: IBUPROFEN
     Indication: PRODUCT USED FOR UNKNOWN INDICATION
     Dosage: 5,50,100,200 AND 250 MG ON 2ND DAY
     Route: 065
  14. DIPYRONE [Suspect]
     Active Substance: DIPYRONE
     Indication: PRODUCT USED FOR UNKNOWN INDICATION
     Dosage: 5, 10, AND 50 MG DURING THE 2ND DAY
     Route: 065

REACTIONS (4)
  - Product use in unapproved indication [Unknown]
  - Off label use [Unknown]
  - Angioedema [Unknown]
  - Urticaria [Unknown]
